FAERS Safety Report 7103811-7 (Version None)
Quarter: 2010Q4

REPORT INFORMATION
  Report Type: 
  Country: None (occurrence: None)
  Receive Date: 20101115
  Receipt Date: 20101102
  Transmission Date: 20110411
  Serious: Yes (Other)
  Sender: FDA-Public Use
  Company Number: US-ELI_LILLY_AND_COMPANY-US201009004788

PATIENT
  Sex: Female

DRUGS (13)
  1. CYMBALTA [Suspect]
     Indication: FIBROMYALGIA
     Dosage: 30 MG, DAILY (1/D)
     Dates: start: 20100602, end: 20100909
  2. DILTIAZEM [Concomitant]
  3. ALDACTONE [Concomitant]
  4. ASPIRIN [Concomitant]
  5. LOSARTAN [Concomitant]
  6. PRAVASTATIN [Concomitant]
  7. PREVACID [Concomitant]
     Dosage: UNK, AS NEEDED
  8. RESTASIS [Concomitant]
  9. PREMARIN [Concomitant]
  10. PANTOPRAZOLE [Concomitant]
  11. COZAAR [Concomitant]
  12. ISOSORBIDE DINITRATE [Concomitant]
  13. LEVOTHYROXINE [Concomitant]

REACTIONS (14)
  - ABNORMAL DREAMS [None]
  - BACK INJURY [None]
  - BALANCE DISORDER [None]
  - DIARRHOEA [None]
  - DIZZINESS [None]
  - DRUG WITHDRAWAL SYNDROME [None]
  - FALL [None]
  - FEELING ABNORMAL [None]
  - GAIT DISTURBANCE [None]
  - HEADACHE [None]
  - IRRITABILITY [None]
  - JOINT DISLOCATION [None]
  - LOSS OF CONSCIOUSNESS [None]
  - VERTIGO [None]
